FAERS Safety Report 9134598 (Version 1)
Quarter: 2013Q1

REPORT INFORMATION
  Report Type: Spontaneous
  Country: BR (occurrence: BR)
  Receive Date: 20130304
  Receipt Date: 20130304
  Transmission Date: 20140127
  Serious: Yes (Other)
  Sender: FDA-Public Use
  Company Number: PHHY2013BR020409

PATIENT
  Sex: Female

DRUGS (3)
  1. DIOVAN [Suspect]
     Dosage: 80 MG, UNK
  2. PROTOPIC [Suspect]
  3. CIPROFLOXACIN [Suspect]

REACTIONS (1)
  - Urinary tract infection [Unknown]
